FAERS Safety Report 9537327 (Version 1)
Quarter: 2013Q3

REPORT INFORMATION
  Report Type: Spontaneous
  Country: US (occurrence: None)
  Receive Date: 20130918
  Receipt Date: 20130918
  Transmission Date: 20140515
  Serious: Yes (Life-Threatening, Other)
  Sender: FDA-Public Use
  Company Number: None

PATIENT
  Age: 58 Year
  Sex: Female
  Weight: 58.97 kg

DRUGS (1)
  1. NEXIUM [Suspect]
     Indication: DYSPEPSIA
     Dosage: ONE DOSE ONCE DAILY TAKEN BY MOUTH
     Route: 048
     Dates: start: 20070307, end: 20071221

REACTIONS (4)
  - Dehydration [None]
  - Faecal incontinence [None]
  - Diarrhoea [None]
  - Rectal prolapse [None]
